FAERS Safety Report 8075923-5 (Version None)
Quarter: 2012Q1

REPORT INFORMATION
  Report Type: 
  Country: None (occurrence: None)
  Receive Date: 20120127
  Receipt Date: 20120124
  Transmission Date: 20120608
  Serious: Yes (Other)
  Sender: FDA-Public Use
  Company Number: US-PFIZER INC-2012020290

PATIENT
  Age: 69 Year
  Sex: Male
  Weight: 77.098 kg

DRUGS (15)
  1. PLAVIX [Suspect]
     Dosage: 75 MG, DAILY
     Dates: start: 20110101
  2. LISINOPRIL [Concomitant]
     Dosage: 20 MG, DAILY
  3. METOPROLOL TARTRATE [Concomitant]
     Dosage: 25 MG, DAILY
  4. EXTRA STRENGTH TYLENOL [Concomitant]
     Dosage: UNK, 2X/DAY
  5. IRON [Concomitant]
     Dosage: 65 MG, 2X/DAY
  6. COUMADIN [Suspect]
     Dosage: 2.5 MG, 3X/DAY
     Dates: start: 20110101
  7. POTASSIUM CHLORIDE [Concomitant]
     Dosage: 20 MEQ, DAILY
  8. ASCORBIC ACID [Concomitant]
     Dosage: 1000 MG, DAILY
  9. JANUVIA [Concomitant]
     Dosage: UNK
  10. ASPIRIN [Suspect]
     Dosage: 81 MG, DAILY
  11. MAGNESIUM [Concomitant]
     Dosage: 200 MG, DAILY
  12. LIPITOR [Concomitant]
     Dosage: 20 MG, UNK
  13. MULTI-VITAMINS [Concomitant]
     Dosage: UNK
  14. TIKOSYN [Suspect]
     Indication: ATRIAL FIBRILLATION
     Dosage: 500 MG, 2X/DAY
     Route: 048
     Dates: start: 20110101
  15. PRILOSEC [Concomitant]
     Dosage: 20 MG, DAILY

REACTIONS (2)
  - VASCULAR GRAFT [None]
  - GINGIVAL BLEEDING [None]
